FAERS Safety Report 25125005 (Version 2)
Quarter: 2025Q2

REPORT INFORMATION
  Report Type: Spontaneous
  Country: GB (occurrence: GB)
  Receive Date: 20250326
  Receipt Date: 20250409
  Transmission Date: 20250716
  Serious: Yes (Hospitalization, Other)
  Sender: INSUD PHARMA
  Company Number: GB-002147023-NVSC2025GB043892

PATIENT
  Sex: Female

DRUGS (2)
  1. FULVESTRANT [Suspect]
     Active Substance: FULVESTRANT
     Indication: Breast cancer metastatic
     Route: 065
  2. KISQALI [Suspect]
     Active Substance: RIBOCICLIB
     Indication: Breast cancer metastatic
     Route: 065

REACTIONS (6)
  - Respiratory failure [Recovering/Resolving]
  - Dyspnoea [Recovering/Resolving]
  - Influenza [Recovering/Resolving]
  - Malignant neoplasm progression [Unknown]
  - Breast cancer metastatic [Unknown]
  - Anaemia [Unknown]
